FAERS Safety Report 7725888-8 (Version None)
Quarter: 2011Q3

REPORT INFORMATION
  Report Type: 
  Country: None (occurrence: None)
  Receive Date: 20110902
  Receipt Date: 20110830
  Transmission Date: 20111222
  Serious: Yes (Life-Threatening, Hospitalization)
  Sender: FDA-Public Use
  Company Number: JP-SANOFI-AVENTIS-2011SA055635

PATIENT
  Age: 61 Year
  Sex: Male

DRUGS (7)
  1. XELODA [Suspect]
     Indication: LARGE INTESTINE CARCINOMA
     Route: 048
     Dates: start: 20110510
  2. AVASTIN [Suspect]
     Indication: LARGE INTESTINE CARCINOMA
     Route: 041
     Dates: start: 20110510, end: 20110531
  3. OXALIPLATIN [Suspect]
     Indication: LARGE INTESTINE CARCINOMA
     Route: 041
     Dates: start: 20110510, end: 20110531
  4. CAMPTOSAR [Suspect]
     Indication: LARGE INTESTINE CARCINOMA
     Route: 041
     Dates: start: 20060708, end: 20070828
  5. LEUCOVORIN CALCIUM [Concomitant]
     Indication: LARGE INTESTINE CARCINOMA
     Route: 041
     Dates: start: 20060708, end: 20070828
  6. EFUDEX [Concomitant]
     Indication: LARGE INTESTINE CARCINOMA
     Route: 040
     Dates: start: 20060708, end: 20070828
  7. EFUDEX [Concomitant]
     Route: 041
     Dates: start: 20060708, end: 20070828

REACTIONS (4)
  - DISSEMINATED INTRAVASCULAR COAGULATION [None]
  - DIARRHOEA [None]
  - SEPSIS [None]
  - COLITIS [None]
